FAERS Safety Report 7539700-3 (Version None)
Quarter: 2011Q2

REPORT INFORMATION
  Report Type: 
  Country: None (occurrence: None)
  Receive Date: 20110610
  Receipt Date: 20110608
  Transmission Date: 20111010
  Serious: Yes (Other)
  Sender: FDA-Public Use
  Company Number: US-PFIZER INC-2011118736

PATIENT
  Sex: Female
  Weight: 86 kg

DRUGS (4)
  1. CALAN [Suspect]
     Indication: ARRHYTHMIA
     Dosage: 120 MG, 2X/DAY
     Dates: start: 19910101, end: 20110301
  2. CALAN [Suspect]
     Dosage: UNK
     Route: 048
     Dates: start: 20110601
  3. SYNTHROID [Concomitant]
     Indication: THYROID DISORDER
     Dosage: UNK
  4. VERAPAMIL HCL [Suspect]
     Indication: ARRHYTHMIA
     Dosage: 240 MG, UNK
     Dates: start: 20110301, end: 20110601

REACTIONS (4)
  - DIZZINESS [None]
  - FATIGUE [None]
  - DYSPNOEA [None]
  - LOSS OF CONSCIOUSNESS [None]
